FAERS Safety Report 9828148 (Version 1)
Quarter: 2014Q1

REPORT INFORMATION
  Report Type: Report from Study
  Country: JP (occurrence: JP)
  Receive Date: 20140117
  Receipt Date: 20140117
  Transmission Date: 20141002
  Serious: Yes (Hospitalization)
  Sender: FDA-Public Use
  Company Number: JP-GLAXOSMITHKLINE-B0947971A

PATIENT
  Age: 80 Year
  Sex: Female

DRUGS (2)
  1. ARZERRA [Suspect]
     Indication: CHRONIC LYMPHOCYTIC LEUKAEMIA
     Route: 042
     Dates: start: 20130903, end: 20131217
  2. FUROSEMIDE [Concomitant]
     Indication: CARDIAC FAILURE
     Route: 065

REACTIONS (5)
  - Oedema [Recovering/Resolving]
  - Weight increased [Recovering/Resolving]
  - Dry skin [Recovering/Resolving]
  - Stomatitis [Recovering/Resolving]
  - Oral herpes [Recovering/Resolving]
